FAERS Safety Report 24992296 (Version 1)
Quarter: 2025Q1

REPORT INFORMATION
  Report Type: Report from Study
  Country: AR (occurrence: AR)
  Receive Date: 20250220
  Receipt Date: 20250220
  Transmission Date: 20250409
  Serious: Yes (Death, Hospitalization)
  Sender: JOHNSON AND JOHNSON
  Company Number: AR-BAYER-2025A023311

PATIENT
  Age: 63 Year
  Sex: Male

DRUGS (2)
  1. VENTAVIS [Suspect]
     Active Substance: ILOPROST
     Indication: Pulmonary hypertension
     Dosage: 6 X 2.5 MCG NEBULISATIONS DAILY
     Route: 055
     Dates: start: 20101101, end: 20250212
  2. AMBRISENTAN [Concomitant]
     Active Substance: AMBRISENTAN
     Indication: Pulmonary hypertension
     Dates: end: 20250212

REACTIONS (3)
  - Hepatic haemorrhage [Fatal]
  - Multiple organ dysfunction syndrome [Fatal]
  - Cardiac arrest [Fatal]

NARRATIVE: CASE EVENT DATE: 20250208
